FAERS Safety Report 4655325-1 (Version None)
Quarter: 2005Q2

REPORT INFORMATION
  Report Type: 
  Country: None (occurrence: None)
  Receive Date: 20050505
  Receipt Date: 20050415
  Transmission Date: 20051028
  Serious: Yes (Hospitalization)
  Sender: FDA-Public Use
  Company Number: USA050393994

PATIENT
  Age: 73 Year
  Sex: Male

DRUGS (2)
  1. GEMZAR [Suspect]
     Indication: NON-SMALL CELL LUNG CANCER STAGE IV
     Dosage: 200 MG/M2
     Dates: start: 20050216
  2. CARBOPLATIN [Concomitant]

REACTIONS (6)
  - ASTHENIA [None]
  - COOMBS POSITIVE HAEMOLYTIC ANAEMIA [None]
  - GASTROINTESTINAL HAEMORRHAGE [None]
  - PLATELET COUNT DECREASED [None]
  - PROCEDURAL COMPLICATION [None]
  - WHITE BLOOD CELL COUNT DECREASED [None]
